FAERS Safety Report 5872698-2 (Version None)
Quarter: 2008Q3

REPORT INFORMATION
  Report Type: 
  Country: None (occurrence: None)
  Receive Date: 20080905
  Receipt Date: 20080826
  Transmission Date: 20090109
  Serious: Yes (Life-Threatening, Hospitalization, Other)
  Sender: FDA-Public Use
  Company Number: JP-SANOFI-SYNTHELABO-A01200709046

PATIENT
  Sex: Male
  Weight: 64 kg

DRUGS (5)
  1. FLUOROURACIL [Suspect]
     Indication: RECTAL CANCER
     Dosage: 650 MG IN BOLUS THEN 1000 MG AS CONTINUOUS INFUSION
     Route: 042
     Dates: start: 20070725, end: 20070726
  2. ISOVORIN [Suspect]
     Indication: RECTAL CANCER
     Route: 041
     Dates: start: 20070808, end: 20070808
  3. SEROTONE [Concomitant]
     Indication: PREMEDICATION
     Dosage: 10 MG
     Route: 042
     Dates: start: 20070307, end: 20070808
  4. DECADRON SRC [Concomitant]
     Indication: PREMEDICATION
     Dosage: 16-8 MG UNK
     Route: 042
     Dates: start: 20070327, end: 20070808
  5. ELPLAT [Suspect]
     Indication: RECTAL CANCER
     Route: 041
     Dates: start: 20070808, end: 20070808

REACTIONS (5)
  - ANAPHYLACTOID REACTION [None]
  - DISSEMINATED INTRAVASCULAR COAGULATION [None]
  - LIVER DISORDER [None]
  - PLATELET COUNT DECREASED [None]
  - RENAL FAILURE ACUTE [None]
